FAERS Safety Report 7663921-2 (Version None)
Quarter: 2011Q3

REPORT INFORMATION
  Report Type: 
  Country: None (occurrence: None)
  Receive Date: 20110805
  Receipt Date: 20101025
  Transmission Date: 20111222
  Serious: No
  Sender: FDA-Public Use
  Company Number: US-ABBOTT-10P-163-0662178-00

PATIENT
  Sex: Female
  Weight: 83.99 kg

DRUGS (36)
  1. ASPIRIN [Concomitant]
     Indication: PRODUCT USED FOR UNKNOWN INDICATION
  2. DIOVAN [Concomitant]
     Indication: PRODUCT USED FOR UNKNOWN INDICATION
  3. CLONOPIN [Concomitant]
     Indication: DROOLING
  4. GABAPENTIN [Concomitant]
     Indication: PRODUCT USED FOR UNKNOWN INDICATION
  5. NIASPAN [Suspect]
     Indication: BLOOD CHOLESTEROL INCREASED
     Dates: start: 20091204
  6. PROVIGIL [Concomitant]
     Indication: PRODUCT USED FOR UNKNOWN INDICATION
  7. SYMBICORT [Concomitant]
     Indication: PRODUCT USED FOR UNKNOWN INDICATION
     Dosage: 160/45
  8. SINGULAIR [Concomitant]
     Indication: PRODUCT USED FOR UNKNOWN INDICATION
  9. VENTOLIN HFA [Concomitant]
     Indication: PRODUCT USED FOR UNKNOWN INDICATION
  10. NIASPAN [Concomitant]
     Indication: PRODUCT USED FOR UNKNOWN INDICATION
  11. COMPLETE PLUS VITAMIN [Concomitant]
     Indication: PRODUCT USED FOR UNKNOWN INDICATION
  12. LOVAZA [Concomitant]
     Indication: PRODUCT USED FOR UNKNOWN INDICATION
  13. NORVAC [Concomitant]
     Indication: PRODUCT USED FOR UNKNOWN INDICATION
  14. HYDROCHLOROTHIAZIDE [Concomitant]
     Indication: PRODUCT USED FOR UNKNOWN INDICATION
  15. FLOMADE [Concomitant]
     Indication: PRODUCT USED FOR UNKNOWN INDICATION
  16. LEVOTHYROXINE SODIUM [Concomitant]
     Indication: PRODUCT USED FOR UNKNOWN INDICATION
  17. DIAZEPAM [Concomitant]
     Indication: PRODUCT USED FOR UNKNOWN INDICATION
  18. SKELEXIN [Concomitant]
     Indication: PRODUCT USED FOR UNKNOWN INDICATION
  19. NIASPAN [Suspect]
     Indication: CEREBROVASCULAR ACCIDENT
  20. ZOCOR [Concomitant]
     Indication: PRODUCT USED FOR UNKNOWN INDICATION
  21. TRICOR [Concomitant]
     Indication: PRODUCT USED FOR UNKNOWN INDICATION
  22. SIMVASTATIN [Concomitant]
     Indication: PRODUCT USED FOR UNKNOWN INDICATION
  23. ESTRADIOL [Concomitant]
     Indication: PRODUCT USED FOR UNKNOWN INDICATION
  24. DEPTROPINE [Concomitant]
     Indication: PRODUCT USED FOR UNKNOWN INDICATION
  25. VIT D [Concomitant]
     Indication: PRODUCT USED FOR UNKNOWN INDICATION
  26. AED CRANBERRY [Concomitant]
     Indication: PRODUCT USED FOR UNKNOWN INDICATION
  27. HORMONE REPLACEMENT THERAPY [Concomitant]
     Indication: HORMONE REPLACEMENT THERAPY
  28. CLONAZEPAM [Concomitant]
     Indication: PRODUCT USED FOR UNKNOWN INDICATION
  29. MELOXICAM [Concomitant]
     Indication: PRODUCT USED FOR UNKNOWN INDICATION
  30. CELEBREX [Concomitant]
     Indication: PRODUCT USED FOR UNKNOWN INDICATION
  31. CLONOPIN [Concomitant]
     Indication: BRUXISM
  32. ALLEGRA [Concomitant]
     Indication: PRODUCT USED FOR UNKNOWN INDICATION
  33. CUNDYN [Concomitant]
     Indication: PRODUCT USED FOR UNKNOWN INDICATION
  34. OMEPRAZOLE [Concomitant]
     Indication: PRODUCT USED FOR UNKNOWN INDICATION
  35. ELLEXOR XR [Concomitant]
     Indication: PRODUCT USED FOR UNKNOWN INDICATION
  36. FERROUS SULFATE TAB [Concomitant]
     Indication: PRODUCT USED FOR UNKNOWN INDICATION

REACTIONS (5)
  - ILL-DEFINED DISORDER [None]
  - TRANSIENT ISCHAEMIC ATTACK [None]
  - FLUSHING [None]
  - COMPLICATED MIGRAINE [None]
  - VERTIGO [None]
